FAERS Safety Report 12534588 (Version 3)
Quarter: 2017Q1

REPORT INFORMATION
  Report Type: Spontaneous
  Country: US (occurrence: US)
  Receive Date: 20160706
  Receipt Date: 20170112
  Transmission Date: 20170428
  Serious: No
  Sender: FDA-Public Use
  Company Number: US-ACTELION-A-NJ2016-138193

PATIENT
  Age: 68 Year
  Sex: Female

DRUGS (2)
  1. TRACLEER [Suspect]
     Active Substance: BOSENTAN
     Indication: PULMONARY ARTERIAL HYPERTENSION
     Dosage: 125 MG, BID
     Route: 048
     Dates: start: 20130822
  2. ADCIRCA [Concomitant]
     Active Substance: TADALAFIL

REACTIONS (5)
  - Arthralgia [Unknown]
  - Infection [Unknown]
  - Muscle spasms [Unknown]
  - Myalgia [Unknown]
  - Electrolyte depletion [Unknown]
